FAERS Safety Report 21804489 (Version 1)
Quarter: 2023Q1

REPORT INFORMATION
  Report Type: Spontaneous
  Country: CA (occurrence: CA)
  Receive Date: 20230102
  Receipt Date: 20230102
  Transmission Date: 20230417
  Serious: Yes (Other)
  Sender: FDA-Public Use
  Company Number: CA-SAMSUNG BIOEPIS-SB-2022-32945

PATIENT
  Age: 46 Year
  Sex: Male
  Weight: 117 kg

DRUGS (9)
  1. ADALIMUMAB [Suspect]
     Active Substance: ADALIMUMAB
     Indication: Product used for unknown indication
     Dosage: SOLUTION SUBCUTANEOUS
     Route: 058
  2. ADALIMUMAB [Suspect]
     Active Substance: ADALIMUMAB
     Route: 058
  3. ADALIMUMAB [Suspect]
     Active Substance: ADALIMUMAB
     Route: 058
  4. METHOTREXATE [Suspect]
     Active Substance: METHOTREXATE
     Indication: Oligoarthritis
     Route: 048
  5. METHOTREXATE [Suspect]
     Active Substance: METHOTREXATE
     Indication: Ankylosing spondylitis
     Dosage: THERAPY DURATION: 730
     Route: 065
  6. PREDNISONE [Concomitant]
     Active Substance: PREDNISONE
     Indication: Oligoarthritis
     Dosage: UNKNOWN
     Route: 065
  7. SULFASALAZINE [Concomitant]
     Active Substance: SULFASALAZINE
     Indication: Product used for unknown indication
     Route: 065
  8. INFLIXIMAB [Concomitant]
     Active Substance: INFLIXIMAB
     Indication: Ankylosing spondylitis
     Route: 042
  9. HUMIRA [Concomitant]
     Active Substance: ADALIMUMAB
     Indication: Oligoarthritis
     Dosage: SOLUTION SUBCUTANEOUS
     Route: 058

REACTIONS (12)
  - Asthenia [Recovered/Resolved]
  - Cholecystitis [Recovered/Resolved]
  - Condition aggravated [Recovered/Resolved]
  - Diarrhoea [Recovered/Resolved]
  - Drug intolerance [Recovered/Resolved]
  - Infection [Recovered/Resolved]
  - Loss of personal independence in daily activities [Recovered/Resolved]
  - Myalgia [Recovered/Resolved]
  - Nausea [Recovered/Resolved]
  - Oligoarthritis [Recovered/Resolved]
  - Pain [Recovered/Resolved]
  - Pneumonia [Recovered/Resolved]
